FAERS Safety Report 13252079 (Version 1)
Quarter: 2017Q1

REPORT INFORMATION
  Report Type: Spontaneous
  Country: US (occurrence: US)
  Receive Date: 20170220
  Receipt Date: 20170220
  Transmission Date: 20170428
  Serious: No
  Sender: FDA-Public Use
  Company Number: US-GLAXOSMITHKLINE-US2017023081

PATIENT
  Sex: Female

DRUGS (2)
  1. FLOVENT DISKUS [Suspect]
     Active Substance: FLUTICASONE PROPIONATE
     Indication: WHEEZING
  2. FLOVENT DISKUS [Suspect]
     Active Substance: FLUTICASONE PROPIONATE
     Indication: PULMONARY CONGESTION
     Dosage: 2 PUFF(S), BID
     Dates: start: 20170210

REACTIONS (5)
  - Device use error [Unknown]
  - Overdose [Recovered/Resolved]
  - Accidental underdose [Unknown]
  - Wrong technique in product usage process [Unknown]
  - Cough [Unknown]
